FAERS Safety Report 8604700-9 (Version None)
Quarter: 2012Q3

REPORT INFORMATION
  Report Type: 
  Country: None (occurrence: None)
  Receive Date: 20120820
  Receipt Date: 20120816
  Transmission Date: 20120928
  Serious: Yes (Death, Other)
  Sender: FDA-Public Use
  Company Number: PHHY2012DK048866

PATIENT
  Sex: Male
  Weight: 80 kg

DRUGS (10)
  1. ZOMETA [Suspect]
     Dosage: 4 MG/5 ML EVERY 4 WEEKS
     Route: 042
     Dates: start: 20120419, end: 20120529
  2. FLUOXETINE HCL [Concomitant]
     Dates: start: 20061012
  3. ZOMETA [Suspect]
     Indication: METASTASES TO BONE
     Dosage: 4 MG/5 ML EVERY 4 WEEKS
     Route: 042
     Dates: start: 20090107, end: 20111114
  4. DENOSUMAB [Concomitant]
     Indication: METASTASES TO BONE
     Dosage: 120 MG
     Route: 058
     Dates: start: 20111114, end: 20120208
  5. MORPHINE SULFATE [Concomitant]
     Indication: PAIN
     Dates: start: 20070623
  6. CALCIUM CITRATE W/COLECALCIFEROL [Concomitant]
     Indication: PROPHYLAXIS
     Dates: start: 20061001
  7. PREDNISOLONE [Concomitant]
     Indication: ASTHMA
     Dates: start: 20061009
  8. FLUCONAZOLE [Concomitant]
  9. GABAPENTIN [Concomitant]
     Indication: PAIN
     Dates: start: 20110629
  10. CENTYL MED KALIUMKLORID [Concomitant]
     Indication: HYPERTENSION

REACTIONS (7)
  - GINGIVAL SWELLING [None]
  - SWELLING [None]
  - PROSTATE CANCER [None]
  - PAIN IN JAW [None]
  - HYPOAESTHESIA ORAL [None]
  - OSTEONECROSIS OF JAW [None]
  - ERYTHEMA [None]
